FAERS Safety Report 16714408 (Version 2)
Quarter: 2019Q3

REPORT INFORMATION
  Report Type: Spontaneous
  Country: BR (occurrence: BR)
  Receive Date: 20190819
  Receipt Date: 20190820
  Transmission Date: 20191004
  Serious: Yes (Other)
  Sender: FDA-Public Use
  Company Number: BR-JNJFOC-20190811962

PATIENT
  Age: 2 Month
  Sex: Male

DRUGS (2)
  1. DIPIRONA [Suspect]
     Active Substance: METAMIZOLE
     Indication: PYREXIA
     Route: 065
  2. TYLENOL [Suspect]
     Active Substance: ACETAMINOPHEN
     Indication: PYREXIA
     Route: 065

REACTIONS (3)
  - Therapeutic product effect delayed [Unknown]
  - Seizure [Unknown]
  - Pyrexia [Unknown]
